FAERS Safety Report 6942165-3 (Version None)
Quarter: 2010Q3

REPORT INFORMATION
  Report Type: 
  Country: None (occurrence: None)
  Receive Date: 20100826
  Receipt Date: 20100820
  Transmission Date: 20110219
  Serious: Yes (Hospitalization)
  Sender: FDA-Public Use
  Company Number: IT-BAYER-201036063GPV

PATIENT
  Age: 49 Year
  Sex: Male

DRUGS (1)
  1. NEXAVAR [Suspect]
     Indication: HEPATIC NEOPLASM MALIGNANT
     Dosage: TOTAL DAILY DOSE: 800 MG  UNIT DOSE: 200 MG
     Route: 048
     Dates: start: 20090324, end: 20090630

REACTIONS (4)
  - CARDIAC ENZYMES INCREASED [None]
  - DIARRHOEA [None]
  - GINGIVAL BLEEDING [None]
  - SUPRAVENTRICULAR TACHYCARDIA [None]
